FAERS Safety Report 6731450-6 (Version None)
Quarter: 2010Q2

REPORT INFORMATION
  Report Type: 
  Country: None (occurrence: None)
  Receive Date: 20100519
  Receipt Date: 20100511
  Transmission Date: 20101027
  Serious: Yes (Hospitalization)
  Sender: FDA-Public Use
  Company Number: US-BRISTOL-MYERS SQUIBB COMPANY-15101413

PATIENT
  Sex: Male

DRUGS (4)
  1. ONGLYZA [Suspect]
  2. AMARYL [Suspect]
  3. INSULIN [Concomitant]
  4. HYPERTENSION MEDICATION [Concomitant]

REACTIONS (1)
  - CARDIAC FAILURE [None]
